FAERS Safety Report 9617105 (Version 1)
Quarter: 2013Q4

REPORT INFORMATION
  Report Type: Spontaneous
  Country: US (occurrence: US)
  Receive Date: 20131011
  Receipt Date: 20131011
  Transmission Date: 20140711
  Serious: No
  Sender: FDA-Public Use
  Company Number: US-TARO-2013P1006348

PATIENT
  Age: 34 Year
  Sex: Female
  Weight: 68.04 kg

DRUGS (5)
  1. LORATADINE SYRUP (LORATADINE ORAL SOLUTION USP) 5MG/5ML [Suspect]
     Route: 055
     Dates: start: 20130521, end: 20130521
  2. LORATADINE SYRUP (LORATADINE ORAL SOLUTION USP) 5MG/5ML [Suspect]
     Route: 055
     Dates: start: 20130521, end: 20130521
  3. VITAMINS [Concomitant]
  4. UNSPECIFIED BIRTH CONTROL PILLS [Concomitant]
  5. CLARITIN [Concomitant]

REACTIONS (2)
  - Nasal discomfort [Not Recovered/Not Resolved]
  - Pain [Not Recovered/Not Resolved]
